FAERS Safety Report 24895355 (Version 1)
Quarter: 2025Q1

REPORT INFORMATION
  Report Type: Report from Study
  Country: US (occurrence: US)
  Receive Date: 20250128
  Receipt Date: 20250128
  Transmission Date: 20250409
  Serious: Yes (Death)
  Sender: BAYER HEALTHCARE PHARMACEUTICALS INC.
  Company Number: US-BAYER-2025A013331

PATIENT
  Age: 79 Year
  Sex: Female
  Weight: 47.166 kg

DRUGS (15)
  1. ADEMPAS [Suspect]
     Active Substance: RIOCIGUAT
     Indication: Pulmonary arterial hypertension
     Dates: start: 20210312
  2. ADEMPAS [Suspect]
     Active Substance: RIOCIGUAT
     Indication: Pulmonary arterial hypertension
     Dosage: 2.5 MG, TID
     Route: 048
  3. POTASSIUM CHLORIDE [Concomitant]
     Active Substance: POTASSIUM CHLORIDE
  4. TYLENOL EXTRA STRENGTH [Concomitant]
     Active Substance: ACETAMINOPHEN
  5. OPSUMIT [Concomitant]
     Active Substance: MACITENTAN
  6. TRELEGY ELLIPTA [Concomitant]
     Active Substance: FLUTICASONE FUROATE\UMECLIDINIUM BROMIDE\VILANTEROL TRIFENATATE
  7. GABAPENTIN [Concomitant]
     Active Substance: GABAPENTIN
  8. LIPITOR [Concomitant]
     Active Substance: ATORVASTATIN CALCIUM
  9. ELIQUIS [Concomitant]
     Active Substance: APIXABAN
  10. OXYGEN [Concomitant]
     Active Substance: OXYGEN
  11. VITAMIN D3 [Concomitant]
     Active Substance: CHOLECALCIFEROL
  12. OMEPRAZOLE [Concomitant]
     Active Substance: OMEPRAZOLE
  13. TORSEMIDE [Concomitant]
     Active Substance: TORSEMIDE
  14. TYVASO [Concomitant]
     Active Substance: TREPROSTINIL
  15. VITAMIN C [Concomitant]
     Active Substance: ASCORBIC ACID

REACTIONS (1)
  - Death [Fatal]

NARRATIVE: CASE EVENT DATE: 20250124
